FAERS Safety Report 9565176 (Version 2)
Quarter: 2013Q4

REPORT INFORMATION
  Report Type: Spontaneous
  Country: BR (occurrence: BR)
  Receive Date: 20130930
  Receipt Date: 20131008
  Transmission Date: 20140711
  Serious: Yes (Death, Hospitalization)
  Sender: FDA-Public Use
  Company Number: BR-ACTELION-A-CH2013-89224

PATIENT
  Age: 14 Year
  Sex: Female

DRUGS (2)
  1. ZAVESCA [Suspect]
     Indication: TAY-SACHS DISEASE
     Dosage: UNK
     Route: 048
     Dates: start: 2009, end: 201208
  2. ZAVESCA [Suspect]
     Dosage: UNK
     Route: 048
     Dates: start: 201210, end: 201212

REACTIONS (6)
  - Tay-Sachs disease [Fatal]
  - Disease progression [Fatal]
  - Pyrexia [Unknown]
  - Tracheostomy [Unknown]
  - Sepsis [Unknown]
  - Gastrostomy [Unknown]
